FAERS Safety Report 5420606-0 (Version None)
Quarter: 2007Q3

REPORT INFORMATION
  Report Type: 
  Country: None (occurrence: None)
  Receive Date: 20070821
  Receipt Date: 20070806
  Transmission Date: 20080115
  Serious: Yes (Hospitalization)
  Sender: FDA-Public Use
  Company Number: JP-ASTRAZENECA-2007AP04970

PATIENT
  Age: 41 Year
  Sex: Male

DRUGS (6)
  1. SEROQUEL [Suspect]
     Route: 048
     Dates: start: 20020205, end: 20070802
  2. SEROQUEL [Suspect]
     Dosage: TREATMENT GIVEN OVER A TWO DAY PERIOD
     Route: 048
     Dates: start: 20070803, end: 20070804
  3. FLUNITRAZEPAM [Concomitant]
     Route: 048
     Dates: end: 20070805
  4. DORAL [Concomitant]
     Route: 048
     Dates: end: 20070805
  5. VEGATAMIN B [Concomitant]
     Route: 048
     Dates: end: 20070805
  6. HORIZON [Concomitant]
     Route: 048
     Dates: end: 20070805

REACTIONS (2)
  - HEPATIC FAILURE [None]
  - RHABDOMYOLYSIS [None]
